FAERS Safety Report 11585475 (Version 2)
Quarter: 2015Q4

REPORT INFORMATION
  Report Type: Spontaneous
  Country: BR (occurrence: BR)
  Receive Date: 20151001
  Receipt Date: 20151014
  Transmission Date: 20160304
  Serious: Yes (Life-Threatening)
  Sender: FDA-Public Use
  Company Number: BR-VALIDUS PHARMACEUTICALS LLC-BR-2015VAL000598

PATIENT
  Sex: Male
  Weight: 100 kg

DRUGS (1)
  1. PARLODEL [Suspect]
     Active Substance: BROMOCRIPTINE MESYLATE
     Indication: ERECTILE DYSFUNCTION
     Dosage: 2 DF, UNK
     Route: 048

REACTIONS (1)
  - Apparent death [Unknown]
